FAERS Safety Report 25528921 (Version 2)
Quarter: 2025Q3

REPORT INFORMATION
  Report Type: Other
  Country: US (occurrence: US)
  Receive Date: 20250708
  Receipt Date: 20250917
  Transmission Date: 20251021
  Serious: No
  Sender: TRAVERE THERAPEUTICS
  Company Number: US-TRAVERE-2025TVT01000

PATIENT
  Age: 70 Year
  Sex: Male

DRUGS (4)
  1. FILSPARI [Suspect]
     Active Substance: SPARSENTAN
     Indication: Chronic kidney disease
     Route: 048
  2. FILSPARI [Suspect]
     Active Substance: SPARSENTAN
     Indication: Proteinuria
     Dosage: 2 TABLETS OF 200 MG
     Route: 048
  3. FILSPARI [Suspect]
     Active Substance: SPARSENTAN
     Indication: Nephritic syndrome
  4. FILSPARI [Suspect]
     Active Substance: SPARSENTAN
     Indication: Focal segmental glomerulosclerosis

REACTIONS (1)
  - Product use in unapproved indication [Unknown]
